FAERS Safety Report 4309082-9 (Version None)
Quarter: 2004Q1

REPORT INFORMATION
  Report Type: 
  Country: None (occurrence: None)
  Receive Date: 20040227
  Receipt Date: 20040212
  Transmission Date: 20041129
  Serious: Yes (Hospitalization)
  Sender: FDA-Public Use
  Company Number: DSA_24012_2004

PATIENT
  Age: 81 Year
  Sex: Male

DRUGS (5)
  1. DILTIAZEM HYDROCHLORIDE [Suspect]
     Dosage: 200 MG Q DAY PO
     Route: 048
     Dates: start: 20030701, end: 20031222
  2. HEMIGOXINE NATIVELLE [Suspect]
     Dosage: 0.125 MG Q DAY PO
     Route: 048
     Dates: start: 20030701, end: 20031222
  3. LANZOR [Concomitant]
  4. MINIRIN [Concomitant]
  5. PREVISCAN [Concomitant]

REACTIONS (5)
  - BLOOD CREATININE INCREASED [None]
  - BRADYCARDIA [None]
  - DRUG LEVEL INCREASED [None]
  - FALL [None]
  - MALAISE [None]
